FAERS Safety Report 9133036 (Version 1)
Quarter: 2013Q1

REPORT INFORMATION
  Report Type: Report from Study
  Country: JP (occurrence: JP)
  Receive Date: 20130301
  Receipt Date: 20130301
  Transmission Date: 20140127
  Serious: Yes (Other)
  Sender: FDA-Public Use
  Company Number: JP-VERTEX PHARMACEUTICALS INC.-2012-026085

PATIENT
  Age: 70 Year
  Sex: Female

DRUGS (12)
  1. VX-950 (TELAPREVIR) [Suspect]
     Indication: CHRONIC HEPATITIS C
     Dosage: 1500 MG, QD
     Route: 048
     Dates: start: 20120824, end: 20121011
  2. PEGINTERFERON ALFA-2B [Suspect]
     Indication: CHRONIC HEPATITIS C
     Dosage: 1.5 ?G/KG, QW
     Route: 058
     Dates: start: 20120824, end: 20120831
  3. PEGINTERFERON ALFA-2B [Suspect]
     Dosage: 0.8 ?G/KG, QW
     Route: 058
     Dates: start: 20120907, end: 20121005
  4. REBETOL [Suspect]
     Indication: CHRONIC HEPATITIS C
     Dosage: 600 MG, QD
     Route: 048
     Dates: start: 20120824
  5. REBETOL [Suspect]
     Dosage: 400 MG, QD
     Route: 048
     Dates: start: 20121005, end: 20121011
  6. NORVASC [Concomitant]
     Dosage: 5 MG, QD
     Route: 048
     Dates: end: 20120829
  7. DIOVAN [Concomitant]
     Dosage: 80 MG, QD
     Route: 048
     Dates: end: 20120829
  8. LENDORMIN [Concomitant]
     Dosage: 0.25 MG, QD/PRN
     Route: 048
     Dates: start: 20120831
  9. LENDORMIN [Concomitant]
     Dosage: 0.25 MG, QD
     Route: 048
     Dates: end: 20121101
  10. EURODIN [Concomitant]
     Dosage: 2 MG, QD
     Route: 048
     Dates: start: 20121102
  11. SENNOSIDE [Concomitant]
     Dosage: 12 MG, QD/PRN
     Route: 048
     Dates: start: 20121127
  12. URSO [Concomitant]
     Dosage: 600 MG, QD
     Route: 048
     Dates: start: 20121214

REACTIONS (2)
  - Retinal haemorrhage [Recovered/Resolved]
  - Anaemia [Recovered/Resolved]
